FAERS Safety Report 7934822-7 (Version None)
Quarter: 2011Q4

REPORT INFORMATION
  Report Type: 
  Country: None (occurrence: None)
  Receive Date: 20111122
  Receipt Date: 20111121
  Transmission Date: 20120403
  Serious: No
  Sender: FDA-Public Use
  Company Number: US-PFIZER INC-2011284432

PATIENT
  Sex: Male
  Weight: 81.633 kg

DRUGS (1)
  1. NEURONTIN [Suspect]
     Indication: PAIN
     Dosage: 300 MG, 3X/DAY
     Route: 048
     Dates: start: 20111101, end: 20111120

REACTIONS (5)
  - SWELLING FACE [None]
  - COUGH [None]
  - MUSCULOSKELETAL DISCOMFORT [None]
  - ABDOMINAL DISCOMFORT [None]
  - LOCAL SWELLING [None]
